FAERS Safety Report 6373804-6 (Version None)
Quarter: 2009Q3

REPORT INFORMATION
  Report Type: 
  Country: None (occurrence: None)
  Receive Date: 20090924
  Receipt Date: 20090604
  Transmission Date: 20100115
  Serious: No
  Sender: FDA-Public Use
  Company Number: US-ASTRAZENECA-2009UW14323

PATIENT
  Age: 17 Year
  Sex: Female
  Weight: 54.4 kg

DRUGS (2)
  1. SEROQUEL XR [Suspect]
     Indication: BIPOLAR DISORDER
     Dosage: 200 MG
     Route: 048
  2. SEROQUEL XR [Suspect]
     Dosage: 300 MG
     Route: 048

REACTIONS (2)
  - AMENORRHOEA [None]
  - FATIGUE [None]
